FAERS Safety Report 6619672-6 (Version None)
Quarter: 2010Q1

REPORT INFORMATION
  Report Type: 
  Country: None (occurrence: None)
  Receive Date: 20100309
  Receipt Date: 20100302
  Transmission Date: 20100710
  Serious: Yes (Other)
  Sender: FDA-Public Use
  Company Number: US-JNJFOC-20100301398

PATIENT
  Sex: Female
  Weight: 65.77 kg

DRUGS (3)
  1. DURAGESIC-100 [Suspect]
     Indication: FIBROMYALGIA
     Route: 062
  2. DURAGESIC-100 [Suspect]
     Route: 062
  3. OXYCONTIN [Concomitant]
     Indication: BREAKTHROUGH PAIN
     Route: 065

REACTIONS (10)
  - APPLICATION SITE IRRITATION [None]
  - DRUG EFFECT DECREASED [None]
  - FIBROMYALGIA [None]
  - LYMPH NODE PAIN [None]
  - MENOPAUSAL SYMPTOMS [None]
  - OROPHARYNGEAL PAIN [None]
  - PAIN [None]
  - PRODUCT ADHESION ISSUE [None]
  - PRODUCT QUALITY ISSUE [None]
  - THYROID DISORDER [None]
